FAERS Safety Report 4801167-3 (Version None)
Quarter: 2005Q4

REPORT INFORMATION
  Report Type: 
  Country: None (occurrence: None)
  Receive Date: 20051011
  Receipt Date: 20050928
  Transmission Date: 20060501
  Serious: Yes (Hospitalization)
  Sender: FDA-Public Use
  Company Number: CHNY2003JP00643

PATIENT
  Age: 72 Year
  Sex: Male

DRUGS (4)
  1. NICOTINE [Suspect]
     Indication: SMOKING CESSATION THERAPY
     Dosage: 21 MG, QD, TRANSDERMAL
     Route: 062
     Dates: start: 20030406, end: 20030429
  2. NORVASC [Concomitant]
  3. HARNAL (TAMSULOSIN HYDROCHLORIDE) [Concomitant]
  4. PRAVASTATIN [Concomitant]

REACTIONS (5)
  - APPLICATION SITE ERYTHEMA [None]
  - DERMATITIS CONTACT [None]
  - DRUG HYPERSENSITIVITY [None]
  - PIGMENTATION DISORDER [None]
  - TYPE IV HYPERSENSITIVITY REACTION [None]
